FAERS Safety Report 8269592-9 (Version None)
Quarter: 2012Q2

REPORT INFORMATION
  Report Type: 
  Country: None (occurrence: None)
  Receive Date: 20120410
  Receipt Date: 20120330
  Transmission Date: 20120825
  Serious: Yes (Hospitalization, Other)
  Sender: FDA-Public Use
  Company Number: US-AMGEN-USASP2012003374

PATIENT
  Age: 61 Year
  Sex: Female

DRUGS (1)
  1. ENBREL [Suspect]
     Indication: RHEUMATOID ARTHRITIS
     Dosage: 25 MG, QWK
     Dates: start: 20000101

REACTIONS (13)
  - PULMONARY FIBROSIS [None]
  - OXYGEN SATURATION DECREASED [None]
  - FINGER DEFORMITY [None]
  - MYOCARDIAL INFARCTION [None]
  - PAIN IN EXTREMITY [None]
  - PALPITATIONS [None]
  - PNEUMONIA [None]
  - RHEUMATOID LUNG [None]
  - HAND DEFORMITY [None]
  - MUSCULAR WEAKNESS [None]
  - SKIN INDURATION [None]
  - ASTHMA [None]
  - HYPERSENSITIVITY [None]
